FAERS Safety Report 10468852 (Version 2)
Quarter: 2014Q3

REPORT INFORMATION
  Report Type: Spontaneous
  Country: FR (occurrence: FR)
  Receive Date: 20140923
  Receipt Date: 20140923
  Transmission Date: 20150326
  Serious: Yes (Hospitalization, Other)
  Sender: FDA-Public Use
  Company Number: FR-AUROBINDO-AUR-APL-2014-09899

PATIENT
  Age: 90 Year
  Sex: Female

DRUGS (7)
  1. FUROSEMIDE 20 MG [Suspect]
     Active Substance: FUROSEMIDE
     Indication: CARDIAC REHABILITATION THERAPY
     Dosage: 20 MG, UNK
     Route: 065
  2. ASPIRINE [Suspect]
     Active Substance: ASPIRIN
     Indication: CARDIAC REHABILITATION THERAPY
     Dosage: 75 MG, UNK
     Route: 065
  3. CLOPIDOGREL [Suspect]
     Active Substance: CLOPIDOGREL BISULFATE
     Indication: CARDIOVASCULAR DISORDER
     Dosage: 75 MG, UNK
     Route: 065
  4. RAMIPRIL 5MG [Suspect]
     Active Substance: RAMIPRIL
     Indication: CARDIAC REHABILITATION THERAPY
     Dosage: 5 MG, UNK
     Route: 065
  5. BISOPROLOL 5 MG [Suspect]
     Active Substance: BISOPROLOL
     Indication: CARDIAC REHABILITATION THERAPY
     Dosage: 5 MG, UNK
     Route: 065
  6. EPLERENONE. [Suspect]
     Active Substance: EPLERENONE
     Indication: CARDIAC REHABILITATION THERAPY
     Dosage: 25 MG, UNK
     Route: 065
  7. ROSUVASTATIN CALCIUM [Suspect]
     Active Substance: ROSUVASTATIN CALCIUM
     Indication: CARDIAC REHABILITATION THERAPY
     Dosage: 5 MG, UNK
     Route: 065

REACTIONS (3)
  - Drug ineffective [Recovered/Resolved]
  - Cardiac failure chronic [Recovered/Resolved]
  - Dyspnoea at rest [Recovered/Resolved]
